FAERS Safety Report 4954972-7 (Version None)
Quarter: 2006Q1

REPORT INFORMATION
  Report Type: 
  Country: None (occurrence: None)
  Receive Date: 20060327
  Receipt Date: 20051025
  Transmission Date: 20060701
  Serious: Yes (Death, Other)
  Sender: FDA-Public Use
  Company Number: JP-SANOFI-SYNTHELABO-F01200502241

PATIENT
  Sex: Female
  Weight: 44 kg

DRUGS (6)
  1. OXALIPLATIN [Suspect]
     Indication: COLON CANCER
     Dosage: 110MG/BODY=85.3MG/M2 IN INFUSION ON DAY 1
     Route: 042
     Dates: start: 20050817, end: 20050817
  2. OXALIPLATIN [Suspect]
     Dosage: 110MG/BODY=85.3MG/M2 IN INFUSION ON DAY 1
     Route: 042
     Dates: start: 20050831, end: 20050831
  3. FLUOROURACIL [Suspect]
     Indication: COLON CANCER
     Dosage: 500MG/BODY =387.6MG/M2 IN BOLUS THEN 700MG/BODY=542.6MG/M2 AS CONTINUOUS INFUSION ON DAYS 1 AND 2
     Route: 042
     Dates: start: 20050817, end: 20050818
  4. FLUOROURACIL [Suspect]
     Dosage: 500MG/BODY =387.6MG/M2 IN BOLUS THEN 700MG/BODY=542.6MG/M2 AS CONTINUOUS INFUSION ON DAYS 1 AND 2
     Route: 042
     Dates: start: 20050831, end: 20050901
  5. CALCIUM LEVOFOLINATE [Suspect]
     Indication: RECTAL CANCER
     Dosage: 125MG/BODY=96.9MG/M2 AS INFUSION ON DAYS 1 AND 2
     Route: 042
     Dates: start: 20050817, end: 20050818
  6. CALCIUM LEVOFOLINATE [Suspect]
     Dosage: 125MG/BODY=96.9MG/M2 AS INFUSION ON DAYS 1 AND 2
     Route: 042
     Dates: start: 20050831, end: 20050901

REACTIONS (5)
  - CONDITION AGGRAVATED [None]
  - HAEMOGLOBIN DECREASED [None]
  - LEUKOPENIA [None]
  - NEUTROPENIA [None]
  - PNEUMONIA [None]
